FAERS Safety Report 25980388 (Version 4)
Quarter: 2025Q4

REPORT INFORMATION
  Report Type: Report from Study
  Country: EU (occurrence: EU)
  Receive Date: 20251030
  Receipt Date: 20251231
  Transmission Date: 20260117
  Serious: Yes (Other)
  Sender: PFIZER
  Company Number: EU-AstraZeneca-CH-00973639A

PATIENT
  Sex: Female

DRUGS (3)
  1. CISPLATIN [Suspect]
     Active Substance: CISPLATIN
     Dosage: UNK
     Route: 065
     Dates: start: 202502, end: 202508
  2. GEMCITABINE HYDROCHLORIDE [Suspect]
     Active Substance: GEMCITABINE HYDROCHLORIDE
     Dosage: UNK
     Route: 065
     Dates: start: 202502, end: 202508
  3. IMFINZI [Suspect]
     Active Substance: DURVALUMAB
     Dosage: INFUSION
     Dates: start: 202502, end: 202508

REACTIONS (3)
  - Colitis [Unknown]
  - Malignant neoplasm progression [Unknown]
  - Metastasis [Unknown]

NARRATIVE: CASE EVENT DATE: 20250201
